FAERS Safety Report 11893845 (Version 1)
Quarter: 2016Q1

REPORT INFORMATION
  Report Type: Spontaneous
  Country: US (occurrence: US)
  Receive Date: 20160107
  Receipt Date: 20160107
  Transmission Date: 20160526
  Serious: No
  Sender: FDA-Public Use
  Company Number: US-ASTRAZENECA-2015SF32097

PATIENT
  Age: 75 Year
  Sex: Female
  Weight: 77.1 kg

DRUGS (9)
  1. BONIVA [Concomitant]
     Active Substance: IBANDRONATE SODIUM
     Dosage: MONTHLY
  2. SIMVASTATIN. [Concomitant]
     Active Substance: SIMVASTATIN
  3. BABY ASPIRIN [Concomitant]
     Active Substance: ASPIRIN
  4. MULTIVITAMINS [Concomitant]
     Active Substance: VITAMINS
  5. SYNTHROID [Concomitant]
     Active Substance: LEVOTHYROXINE SODIUM
  6. VESICARE [Concomitant]
     Active Substance: SOLIFENACIN SUCCINATE
     Indication: BLADDER DISORDER
  7. PROZAC [Concomitant]
     Active Substance: FLUOXETINE HYDROCHLORIDE
  8. CALCIUM [Concomitant]
     Active Substance: CALCIUM
  9. BYDUREON [Suspect]
     Active Substance: EXENATIDE
     Indication: TYPE 2 DIABETES MELLITUS
     Route: 058

REACTIONS (5)
  - Contusion [Unknown]
  - Injection site mass [Unknown]
  - Product quality issue [Unknown]
  - Injection site bruising [Recovering/Resolving]
  - Injection site pain [Unknown]
